FAERS Safety Report 13778712 (Version 1)
Quarter: 2017Q3

REPORT INFORMATION
  Report Type: Spontaneous
  Country: US (occurrence: US)
  Receive Date: 20170721
  Receipt Date: 20170721
  Transmission Date: 20171127
  Serious: No
  Sender: FDA-Public Use
  Company Number: US-SEPTODONT-201703888

PATIENT
  Sex: Female

DRUGS (2)
  1. LIDOCAINE OINTMENT USP, 5% [Suspect]
     Active Substance: LIDOCAINE
     Indication: LOCAL ANAESTHESIA
     Route: 061
  2. LIDOCAINE OINTMENT USP, 5% [Suspect]
     Active Substance: LIDOCAINE
     Indication: LOCAL ANAESTHESIA
     Route: 061

REACTIONS (3)
  - Drug effect delayed [Unknown]
  - Malabsorption from application site [Unknown]
  - Product physical consistency issue [Unknown]
